FAERS Safety Report 5701764-7 (Version None)
Quarter: 2008Q2

REPORT INFORMATION
  Report Type: 
  Country: None (occurrence: None)
  Receive Date: 20080410
  Receipt Date: 20080410
  Transmission Date: 20081010
  Serious: Yes (Life-Threatening)
  Sender: FDA-Public Use
  Company Number: None

PATIENT
  Sex: Female
  Weight: 64.4108 kg

DRUGS (1)
  1. REBIF [Suspect]
     Indication: MULTIPLE SCLEROSIS
     Dosage: THREE X PER WK SQ
     Route: 058
     Dates: start: 20070529, end: 20070926

REACTIONS (2)
  - DYSPNOEA [None]
  - EJECTION FRACTION DECREASED [None]
